FAERS Safety Report 4749681-3 (Version None)
Quarter: 2005Q3

REPORT INFORMATION
  Report Type: 
  Country: None (occurrence: None)
  Receive Date: 20050822
  Receipt Date: 20050816
  Transmission Date: 20060218
  Serious: Yes (Death)
  Sender: FDA-Public Use
  Company Number: BR-ROCHE-414628

PATIENT
  Sex: Male

DRUGS (1)
  1. LANEXAT [Suspect]
     Route: 042
     Dates: start: 20050615, end: 20050615

REACTIONS (2)
  - MULTI-ORGAN FAILURE [None]
  - RENAL FAILURE [None]
